FAERS Safety Report 9417183 (Version 1)
Quarter: 2013Q3

REPORT INFORMATION
  Report Type: Spontaneous
  Country: FR (occurrence: FR)
  Receive Date: 20130724
  Receipt Date: 20130724
  Transmission Date: 20140515
  Serious: Yes (Other)
  Sender: FDA-Public Use
  Company Number: FR-BAYER-2013-086711

PATIENT
  Age: 69 Year
  Sex: Male

DRUGS (4)
  1. CIFLOX [Suspect]
     Indication: SEPSIS
     Dosage: UNK
     Route: 042
     Dates: start: 20130518, end: 20130523
  2. TYGACIL [Suspect]
     Dosage: 50 MG, BID
     Route: 042
     Dates: start: 20130331, end: 20130603
  3. TOBRAMYCIN SULFATE [TOBRAMYCIN SULFATE] [Suspect]
     Indication: MYCOBACTERIAL INFECTION
     Dosage: 100 MG, QD
     Route: 042
     Dates: start: 20130331, end: 20130531
  4. ROCEPHINE [Suspect]
     Indication: SEPSIS
     Dosage: UNK
     Route: 042
     Dates: start: 20130518, end: 20130527

REACTIONS (3)
  - Cholestasis [Recovered/Resolved]
  - Thrombocytopenia [Recovered/Resolved]
  - Anaemia [Recovered/Resolved]
